FAERS Safety Report 11521390 (Version 1)
Quarter: 2015Q3

REPORT INFORMATION
  Report Type: Spontaneous
  Country: US (occurrence: US)
  Receive Date: 20150918
  Receipt Date: 20150918
  Transmission Date: 20151125
  Serious: No
  Sender: FDA-Public Use
  Company Number: US-DRREDDYS-USA/USA/15/0048216

PATIENT
  Age: 64 Year
  Sex: Male

DRUGS (4)
  1. NAB-PACLITAXEL [Suspect]
     Active Substance: PACLITAXEL
     Indication: ADENOCARCINOMA PANCREAS
     Route: 042
  2. NAB-PACLITAXEL [Suspect]
     Active Substance: PACLITAXEL
     Indication: METASTASES TO LIVER
  3. GEMCITABINE [Suspect]
     Active Substance: GEMCITABINE\GEMCITABINE HYDROCHLORIDE
     Indication: ADENOCARCINOMA PANCREAS
     Route: 042
  4. GEMCITABINE [Suspect]
     Active Substance: GEMCITABINE\GEMCITABINE HYDROCHLORIDE
     Indication: METASTASES TO LIVER
     Route: 042

REACTIONS (5)
  - Thrombocytopenia [Unknown]
  - Fatigue [Unknown]
  - Disease progression [Unknown]
  - Alopecia [Unknown]
  - Neuropathy peripheral [Unknown]
